FAERS Safety Report 19197293 (Version 1)
Quarter: 2021Q2

REPORT INFORMATION
  Report Type: Spontaneous
  Country: AU (occurrence: AU)
  Receive Date: 20210429
  Receipt Date: 20210429
  Transmission Date: 20210717
  Serious: Yes (Other)
  Sender: FDA-Public Use
  Company Number: AU-GE HEALTHCARE LIFE SCIENCES-2021CSU001950

PATIENT

DRUGS (5)
  1. OMNIPAQUE [Suspect]
     Active Substance: IOHEXOL
     Indication: COMPUTERISED TOMOGRAM
     Dosage: UNK UNK, SINGLE
     Route: 048
  2. OMNIPAQUE [Suspect]
     Active Substance: IOHEXOL
     Indication: GASTRIC CANCER
  3. OMNIPAQUE [Suspect]
     Active Substance: IOHEXOL
     Indication: GASTRIC CANCER
  4. OMNIPAQUE [Suspect]
     Active Substance: IOHEXOL
     Indication: COMPUTERISED TOMOGRAM
     Dosage: UNK UNK, SINGLE
     Route: 042
  5. APIXABAN [Concomitant]
     Active Substance: APIXABAN

REACTIONS (1)
  - Dermatitis bullous [Recovered/Resolved]
